FAERS Safety Report 5839698-X (Version None)
Quarter: 2008Q3

REPORT INFORMATION
  Report Type: 
  Country: None (occurrence: None)
  Receive Date: 20080730
  Receipt Date: 20080626
  Transmission Date: 20090109
  Serious: No
  Sender: FDA-Public Use
  Company Number: PHEH2008US05743

PATIENT
  Sex: Female

DRUGS (1)
  1. TEKTURNA [Suspect]
     Dates: start: 20080601

REACTIONS (2)
  - BURNING SENSATION [None]
  - INSOMNIA [None]
